FAERS Safety Report 18360560 (Version 1)
Quarter: 2020Q4

REPORT INFORMATION
  Report Type: Spontaneous
  Country: US (occurrence: US)
  Receive Date: 20201008
  Receipt Date: 20201008
  Transmission Date: 20210114
  Serious: No
  Sender: FDA-Public Use
  Company Number: US-INDIVIOR US-INDV-124754-2020

PATIENT
  Sex: Male

DRUGS (2)
  1. OXYCODONE HYDROCHLORIDE. [Concomitant]
     Active Substance: OXYCODONE HYDROCHLORIDE
     Indication: PRODUCT USED FOR UNKNOWN INDICATION
     Dosage: UNK
     Route: 065
  2. SUBOXONE [Suspect]
     Active Substance: BUPRENORPHINE HYDROCHLORIDE\NALOXONE HYDROCHLORIDE
     Indication: DRUG DEPENDENCE
     Dosage: UNK
     Route: 065
     Dates: start: 20150603

REACTIONS (9)
  - Hypertension [Unknown]
  - Drug withdrawal syndrome [Not Recovered/Not Resolved]
  - Depression [Unknown]
  - Heart rate increased [Unknown]
  - Hyperglycaemia [Unknown]
  - Drug dependence [Not Recovered/Not Resolved]
  - Dyschezia [Unknown]
  - Constipation [Unknown]
  - Anxiety [Unknown]
